FAERS Safety Report 8015570-4 (Version None)
Quarter: 2011Q4

REPORT INFORMATION
  Report Type: 
  Country: None (occurrence: None)
  Receive Date: 20111230
  Receipt Date: 20111220
  Transmission Date: 20120403
  Serious: Yes (Other)
  Sender: FDA-Public Use
  Company Number: US-ELI_LILLY_AND_COMPANY-US201112007036

PATIENT
  Sex: Female

DRUGS (3)
  1. FORTEO [Suspect]
     Dosage: 20 UG, QD
     Route: 058
     Dates: start: 20090817
  2. CELEBREX [Concomitant]
  3. VITAMIN TAB [Concomitant]

REACTIONS (2)
  - SPINAL DECOMPRESSION [None]
  - KNEE ARTHROPLASTY [None]
